FAERS Safety Report 8153699-0 (Version None)
Quarter: 2012Q1

REPORT INFORMATION
  Report Type: 
  Country: None (occurrence: None)
  Receive Date: 20120221
  Receipt Date: 20120214
  Transmission Date: 20120608
  Serious: Yes (Hospitalization)
  Sender: FDA-Public Use
  Company Number: CA-B.I. PHARMACEUTICALS,INC./RIDGEFIELD-2012-CN-00319CN

PATIENT
  Age: 71 Year
  Sex: Male

DRUGS (3)
  1. NAPROXEN [Concomitant]
     Route: 065
  2. BISMUTH SUBSALICYLATE [Concomitant]
     Route: 065
  3. PRADAXA [Suspect]
     Dosage: 220 MG
     Route: 048

REACTIONS (8)
  - HAEMATOCHEZIA [None]
  - INTERNATIONAL NORMALISED RATIO INCREASED [None]
  - DIARRHOEA [None]
  - HAEMOGLOBIN DECREASED [None]
  - THROMBIN TIME PROLONGED [None]
  - FAECES DISCOLOURED [None]
  - ABDOMINAL PAIN LOWER [None]
  - ACTIVATED PARTIAL THROMBOPLASTIN TIME PROLONGED [None]
